FAERS Safety Report 9146381 (Version 1)
Quarter: 2013Q1

REPORT INFORMATION
  Report Type: Spontaneous
  Country: US (occurrence: US)
  Receive Date: 20130307
  Receipt Date: 20130307
  Transmission Date: 20140127
  Serious: No
  Sender: FDA-Public Use
  Company Number: US-ASTRAZENECA-2013SE13279

PATIENT
  Age: 64 Year
  Sex: Female

DRUGS (1)
  1. SYMBICORT PMDI [Suspect]
     Indication: BRONCHITIS CHRONIC
     Dosage: 80/4.5, FREQUENCY UNKNOWN
     Route: 055
     Dates: start: 2012

REACTIONS (2)
  - Speech disorder [Unknown]
  - Dysphonia [Unknown]
